FAERS Safety Report 21930503 (Version 1)
Quarter: 2023Q1

REPORT INFORMATION
  Report Type: Spontaneous
  Country: US (occurrence: US)
  Receive Date: 20230131
  Receipt Date: 20230131
  Transmission Date: 20230418
  Serious: No
  Sender: FDA-Public Use
  Company Number: US-SA-SAC20230130001501

PATIENT
  Age: 66 Year
  Sex: Female

DRUGS (1)
  1. KEVZARA [Suspect]
     Active Substance: SARILUMAB
     Dosage: 150 MG
     Route: 058
     Dates: start: 202203

REACTIONS (3)
  - Onychomycosis [Unknown]
  - Ingrowing nail [Unknown]
  - Nail discolouration [Unknown]

NARRATIVE: CASE EVENT DATE: 20230126
